FAERS Safety Report 6293989-X (Version None)
Quarter: 2009Q3

REPORT INFORMATION
  Report Type: 
  Country: None (occurrence: None)
  Receive Date: 20090803
  Receipt Date: 20080701
  Transmission Date: 20100115
  Serious: No
  Sender: FDA-Public Use
  Company Number: A0735712A

PATIENT
  Age: 64 Year
  Sex: Male

DRUGS (1)
  1. NICORETTE [Suspect]
     Dates: start: 20080630, end: 20080630

REACTIONS (2)
  - MALAISE [None]
  - NAUSEA [None]
